FAERS Safety Report 17742940 (Version 1)
Quarter: 2020Q2

REPORT INFORMATION
  Report Type: Spontaneous
  Country: IL (occurrence: IL)
  Receive Date: 20200504
  Receipt Date: 20200504
  Transmission Date: 20200714
  Serious: Yes (Hospitalization)
  Sender: FDA-Public Use
  Company Number: IL-AMERICAN REGENT INC-2020000985

PATIENT
  Age: 51 Year
  Sex: Female

DRUGS (1)
  1. FERINJECT [Suspect]
     Active Substance: FERRIC CARBOXYMALTOSE
     Indication: ANAEMIA
     Dosage: 500 MILLIGRAM, 1 IN 1 WK (TREATED SO FAR WITH 3 FERINJECT DOSES)
     Route: 042

REACTIONS (3)
  - Hypophosphataemia [Recovered/Resolved]
  - Skin discolouration [Not Recovered/Not Resolved]
  - Paraesthesia [Recovered/Resolved]

NARRATIVE: CASE EVENT DATE: 20200311
